FAERS Safety Report 10656917 (Version 1)
Quarter: 2014Q4

REPORT INFORMATION
  Report Type: Spontaneous
  Country: GB (occurrence: None)
  Receive Date: 20141215
  Receipt Date: 20141215
  Transmission Date: 20150529
  Serious: Yes (Death, Other)
  Sender: FDA-Public Use
  Company Number: 2014COR00141

PATIENT
  Age: 9 Year
  Sex: Female

DRUGS (2)
  1. FIVE UNSPECIFIED ANTI-EPILEPTIC DRUGS [Concomitant]
  2. ZONISAMIDE. [Suspect]
     Active Substance: ZONISAMIDE
     Indication: MYOCLONIC EPILEPSY
     Dosage: 1X/DAY

REACTIONS (4)
  - Multi-organ failure [None]
  - Sepsis [None]
  - Hepatic enzyme increased [None]
  - Respiratory failure [None]
